FAERS Safety Report 5246436-0 (Version None)
Quarter: 2007Q1

REPORT INFORMATION
  Report Type: 
  Country: None (occurrence: None)
  Receive Date: 20070222
  Receipt Date: 20070222
  Transmission Date: 20070707
  Serious: No
  Sender: FDA-Public Use
  Company Number: None

PATIENT
  Sex: Female
  Weight: 111.1313 kg

DRUGS (1)
  1. SIMVASTATIN [Suspect]
     Indication: BLOOD CHOLESTEROL INCREASED
     Dosage: 1/2 TAB  DAILY  PO
     Route: 048
     Dates: start: 20060827, end: 20070214

REACTIONS (7)
  - AGGRESSION [None]
  - ARTHRALGIA [None]
  - CONFUSIONAL STATE [None]
  - DISCOMFORT [None]
  - GAIT DISTURBANCE [None]
  - LIGAMENT DISORDER [None]
  - MEMORY IMPAIRMENT [None]
